FAERS Safety Report 15268380 (Version 1)
Quarter: 2018Q3

REPORT INFORMATION
  Report Type: Spontaneous
  Country: US (occurrence: US)
  Receive Date: 20180726
  Receipt Date: 20180726
  Transmission Date: 20181010
  Serious: Yes (Disabling)
  Sender: FDA-Public Use
  Company Number: None

PATIENT
  Age: 52 Year
  Sex: Male
  Weight: 114.75 kg

DRUGS (1)
  1. ENTYVIO [Suspect]
     Active Substance: VEDOLIZUMAB
     Indication: CROHN^S DISEASE
     Dosage: ?          QUANTITY:300 IV INFUSION;OTHER FREQUENCY:EVERY 8 WREKS;?
     Route: 042
     Dates: start: 20170720, end: 20180329

REACTIONS (6)
  - Cold-stimulus headache [None]
  - Dizziness [None]
  - Rhinorrhoea [None]
  - Dyspnoea [None]
  - Gait disturbance [None]
  - Fatigue [None]

NARRATIVE: CASE EVENT DATE: 20180315
